FAERS Safety Report 9753214 (Version 2)
Quarter: 2013Q4

REPORT INFORMATION
  Report Type: Spontaneous
  Country: US (occurrence: US)
  Receive Date: 20131213
  Receipt Date: 20131213
  Transmission Date: 20140711
  Serious: No
  Sender: FDA-Public Use
  Company Number: US-GILEAD-2010-0027368

PATIENT
  Sex: Female

DRUGS (8)
  1. LETAIRIS [Suspect]
     Indication: PULMONARY ARTERIAL HYPERTENSION
     Route: 048
     Dates: start: 20071105
  2. LETAIRIS [Suspect]
     Route: 048
     Dates: end: 20090916
  3. REVATIO [Concomitant]
  4. COZAAR [Concomitant]
  5. COUMADIN [Concomitant]
  6. LASIX [Concomitant]
  7. LEVOTHYROXINE [Concomitant]
  8. KCL [Concomitant]

REACTIONS (1)
  - Abdominal pain upper [Recovered/Resolved]
